FAERS Safety Report 23841907 (Version 1)
Quarter: 2024Q2

REPORT INFORMATION
  Report Type: Spontaneous
  Country: US (occurrence: None)
  Receive Date: 20240509
  Receipt Date: 20240509
  Transmission Date: 20240715
  Serious: Yes (Hospitalization)
  Sender: FDA-Public Use
  Company Number: None

PATIENT
  Sex: Female

DRUGS (10)
  1. LENALIDOMIDE [Suspect]
     Active Substance: LENALIDOMIDE
     Indication: Plasma cell myeloma
     Dosage: FREQUENCY : DAILY;?
     Route: 048
     Dates: start: 20240401
  2. ACETAMINOPHE [Concomitant]
  3. ASPIRIN [Concomitant]
  4. BACTRIM DS [Concomitant]
  5. CALCIUM CIT/TAB VIT D [Concomitant]
  6. METAMUCIL [Concomitant]
  7. MULTIPLE VITAMIN TAB ADULT [Concomitant]
  8. REVLIMID [Concomitant]
  9. REVLIMID CAP 10MG [Concomitant]
  10. VITAMIN D CAP 400UNIT [Concomitant]

REACTIONS (2)
  - Hospitalisation [None]
  - Therapy interrupted [None]
